FAERS Safety Report 19912398 (Version 1)
Quarter: 2021Q4

REPORT INFORMATION
  Report Type: Report from Study
  Country: DE (occurrence: DE)
  Receive Date: 20211004
  Receipt Date: 20211004
  Transmission Date: 20220303
  Serious: Yes (Life-Threatening, Other)
  Sender: FDA-Public Use
  Company Number: DE-JNJFOC-20210947125

PATIENT
  Sex: Male

DRUGS (2)
  1. BORTEZOMIB [Suspect]
     Active Substance: BORTEZOMIB
     Indication: Plasma cell myeloma
     Dosage: 2.7 MILLIGRAM
     Route: 065
     Dates: start: 20201218, end: 20201221
  2. MELPHALAN [Suspect]
     Active Substance: MELPHALAN
     Indication: Plasma cell myeloma
     Dosage: 31 MILLIGRAM
     Route: 065
     Dates: start: 20201218, end: 20201221

REACTIONS (2)
  - Acute kidney injury [Recovering/Resolving]
  - Mitral valve incompetence [Unknown]

NARRATIVE: CASE EVENT DATE: 20201223
